FAERS Safety Report 7927546-3 (Version None)
Quarter: 2011Q4

REPORT INFORMATION
  Report Type: 
  Country: None (occurrence: None)
  Receive Date: 20111118
  Receipt Date: 20111108
  Transmission Date: 20120403
  Serious: Yes (Hospitalization)
  Sender: FDA-Public Use
  Company Number: US-BAYER-2011-050931

PATIENT
  Age: 28 Year
  Sex: Female
  Weight: 80.726 kg

DRUGS (4)
  1. ASCORBIC ACID [Concomitant]
  2. YAZ [Suspect]
     Indication: CONTRACEPTION
     Dosage: UNK
     Dates: start: 20071101, end: 20090801
  3. TOPAMAX [Concomitant]
     Indication: MIGRAINE
     Dosage: 25 MG, UNK
     Dates: start: 20081201, end: 20090901
  4. TOPIRAMATE [Concomitant]
     Indication: MIGRAINE
     Dosage: 50 MG, UNK
     Dates: start: 20081201, end: 20090901

REACTIONS (2)
  - CHEST PAIN [None]
  - PULMONARY EMBOLISM [None]
